FAERS Safety Report 8511105-8 (Version None)
Quarter: 2012Q3

REPORT INFORMATION
  Report Type: 
  Country: None (occurrence: None)
  Receive Date: 20120716
  Receipt Date: 20120709
  Transmission Date: 20120928
  Serious: Yes (Life-Threatening, Hospitalization, Other)
  Sender: FDA-Public Use
  Company Number: DE-JNJFOC-20120517896

PATIENT
  Sex: Female
  Weight: 50 kg

DRUGS (2)
  1. DOXORUBICIN HCL [Suspect]
     Indication: CONDITION AGGRAVATED
     Dosage: AFTER THE FOURTH CYCLE THE PATIENT EXPERIENCED THE EVENTS
     Route: 042
     Dates: start: 20111019
  2. TRABECTEDIN [Concomitant]
     Indication: CONDITION AGGRAVATED
     Route: 042
     Dates: start: 20111019, end: 20111019

REACTIONS (11)
  - DYSPNOEA [None]
  - GASTROOESOPHAGEAL REFLUX DISEASE [None]
  - HYPERTENSIVE CRISIS [None]
  - PNEUMONIA KLEBSIELLA [None]
  - LEUKOPENIA [None]
  - PYREXIA [None]
  - ASPERGILLOMA [None]
  - MALLORY-WEISS SYNDROME [None]
  - OESOPHAGITIS [None]
  - GENERAL PHYSICAL HEALTH DETERIORATION [None]
  - URINARY TRACT INFECTION [None]
